FAERS Safety Report 8379608-7 (Version None)
Quarter: 2012Q2

REPORT INFORMATION
  Report Type: 
  Country: None (occurrence: None)
  Receive Date: 20120523
  Receipt Date: 20120512
  Transmission Date: 20120825
  Serious: Yes (Other)
  Sender: FDA-Public Use
  Company Number: CA-SANOFI-AVENTIS-2012SA034376

PATIENT
  Age: 72 Year
  Sex: Male
  Weight: 65.4 kg

DRUGS (14)
  1. ZOLADEX [Concomitant]
     Indication: PROSTATE CANCER
     Route: 058
     Dates: start: 20110731
  2. HYDROMORPHONE HCL [Concomitant]
     Route: 048
     Dates: start: 20111102
  3. CABAZITAXEL [Suspect]
     Indication: PROSTATE CANCER
     Route: 041
     Dates: start: 20111124, end: 20111124
  4. ANTACIDS [Concomitant]
     Indication: OSTEOPOROSIS PROPHYLAXIS
     Route: 048
     Dates: start: 20100223
  5. PREDNISONE TAB [Suspect]
     Indication: PROSTATE CANCER
     Route: 048
     Dates: start: 20111124
  6. MICARDIS HCT [Concomitant]
     Indication: HYPERTENSION
     Dosage: 80/12.5 MG
     Route: 048
     Dates: start: 20091215
  7. AMIODARONE HCL [Concomitant]
     Route: 048
     Dates: start: 20091211
  8. ACETAMINOPHEN [Concomitant]
     Route: 048
     Dates: start: 20110101
  9. CABAZITAXEL [Suspect]
     Route: 041
     Dates: start: 20120426, end: 20120426
  10. ATORVASTATIN CALCIUM [Concomitant]
     Route: 048
     Dates: start: 20100708
  11. AMLODIPINE BESYLATE [Concomitant]
     Indication: HYPERTENSION
     Route: 048
     Dates: start: 20100218
  12. COUMADIN [Concomitant]
     Indication: ATRIAL FIBRILLATION
     Dosage: DOSE PER INR
     Route: 048
     Dates: start: 20100112
  13. FUROSEMIDE [Concomitant]
     Indication: CARDIOVASCULAR EVENT PROPHYLAXIS
     Route: 048
     Dates: start: 20091228
  14. BISOPROLOL FUMARATE [Concomitant]
     Indication: HYPERTENSION
     Route: 048
     Dates: start: 20091211

REACTIONS (1)
  - HAEMATOCHEZIA [None]
